FAERS Safety Report 6119063-0 (Version None)
Quarter: 2009Q1

REPORT INFORMATION
  Report Type: 
  Country: None (occurrence: None)
  Receive Date: 20090316
  Receipt Date: 20090311
  Transmission Date: 20090719
  Serious: Yes (Death)
  Sender: FDA-Public Use
  Company Number: NO-ASTRAZENECA-2009SE01086

PATIENT
  Age: 85 Year
  Sex: Male

DRUGS (11)
  1. SEROQUEL [Suspect]
     Indication: ANXIETY
     Dosage: DOSE GRADUALLY INCREASED TO 50 MG 2 TIMES DAILY FROM 20090223.
     Route: 048
     Dates: start: 20090219
  2. HEMINEVRIN [Concomitant]
     Indication: ANXIETY
     Dosage: DOSE INCREASED TO 600 MG TWO TIMES DAILY 20090213.
     Route: 048
     Dates: start: 20090203
  3. EXELON [Concomitant]
     Indication: DEMENTIA
     Route: 048
     Dates: start: 20090216
  4. IMDUR [Concomitant]
     Indication: ANGINA PECTORIS
     Route: 048
  5. SELOZOK [Concomitant]
     Indication: INFARCTION
     Route: 048
  6. SOBRIL [Concomitant]
     Route: 048
     Dates: start: 20090213
  7. OXYCONTIN [Concomitant]
     Indication: PAIN
     Route: 048
     Dates: start: 20090202
  8. OMEPRAZOLE [Concomitant]
     Indication: DRUG USE FOR UNKNOWN INDICATION
     Route: 048
  9. TRIOBE [Concomitant]
     Indication: HYPOVITAMINOSIS
     Route: 048
  10. OXYNORM [Concomitant]
     Indication: PAIN
     Dosage: USE WHEN BREAK THROUGH PAIN
     Route: 048
     Dates: start: 20090202
  11. SELEXID [Concomitant]
     Indication: URINARY TRACT INFECTION
     Route: 048
     Dates: start: 20090219

REACTIONS (1)
  - HYPOTENSION [None]
